FAERS Safety Report 9130859 (Version 1)
Quarter: 2013Q1

REPORT INFORMATION
  Report Type: Spontaneous
  Country: US (occurrence: US)
  Receive Date: 20130301
  Receipt Date: 20130301
  Transmission Date: 20140127
  Serious: Yes (Other)
  Sender: FDA-Public Use
  Company Number: US-BAYER-2013-024829

PATIENT
  Age: 49 Year
  Sex: Male

DRUGS (1)
  1. AVELOX [Suspect]
     Dosage: UNK, ONCE
     Route: 048
     Dates: start: 201301, end: 201301

REACTIONS (2)
  - Hypothermia [Recovered/Resolved]
  - Body temperature decreased [Recovered/Resolved]
